FAERS Safety Report 7412025-2 (Version None)
Quarter: 2011Q2

REPORT INFORMATION
  Report Type: 
  Country: None (occurrence: None)
  Receive Date: 20110413
  Receipt Date: 20110407
  Transmission Date: 20111010
  Serious: Yes (Hospitalization, Other)
  Sender: FDA-Public Use
  Company Number: US-SANOFI-AVENTIS-2010SA065846

PATIENT
  Age: 81 Year
  Sex: Female

DRUGS (4)
  1. OPTICLICK [Suspect]
     Indication: TYPE 2 DIABETES MELLITUS
     Dates: start: 20060101
  2. LANTUS [Suspect]
     Indication: TYPE 2 DIABETES MELLITUS
     Dosage: DOSE:13 UNIT(S)
     Route: 058
     Dates: start: 20020101
  3. SOLOSTAR [Suspect]
     Indication: TYPE 2 DIABETES MELLITUS
     Dates: start: 20101101
  4. LANTUS [Suspect]
     Dosage: DOSE:16 UNIT(S)
     Route: 058
     Dates: start: 20101101

REACTIONS (5)
  - PRODUCT QUALITY ISSUE [None]
  - BLOOD GLUCOSE INCREASED [None]
  - MALAISE [None]
  - GLYCOSYLATED HAEMOGLOBIN INCREASED [None]
  - TRANSIENT ISCHAEMIC ATTACK [None]
